FAERS Safety Report 7456149-2 (Version None)
Quarter: 2011Q2

REPORT INFORMATION
  Report Type: 
  Country: None (occurrence: None)
  Receive Date: 20110503
  Receipt Date: 20091122
  Transmission Date: 20111010
  Serious: Yes (Other)
  Sender: FDA-Public Use
  Company Number: US-BAYER-200940062NA

PATIENT
  Age: 74 Year
  Sex: Male
  Weight: 83 kg

DRUGS (12)
  1. VANCOMYCIN [Concomitant]
     Dosage: 1 G, UNK
     Route: 042
     Dates: start: 20050630
  2. TRASYLOL [Suspect]
     Indication: COX-MAZE PROCEDURE
  3. COREG [Concomitant]
     Dosage: 12.5 MG, UNK
  4. HEPARIN [Concomitant]
     Dosage: UNK
     Dates: start: 20050630
  5. TRASYLOL [Suspect]
  6. LASIX [Concomitant]
     Dosage: 40 MG, UNK
     Dates: start: 20050630
  7. SOLU-MEDROL [Concomitant]
     Dosage: 1 G, UNK
     Route: 042
     Dates: start: 20050630
  8. TRASYLOL [Suspect]
     Indication: MITRAL VALVE REPAIR
     Dosage: PUMP PRIME DOSE 200ML, TOTAL 800 ML GIVEN
     Route: 042
     Dates: start: 20050630
  9. FUROSEMIDE [Concomitant]
     Dosage: 40 MG, UNK
  10. ZINACEF [Concomitant]
     Dosage: 1.5 G, UNK
     Route: 042
     Dates: start: 20050630
  11. LISINOPRIL [Concomitant]
     Dosage: 10 UNK, UNK
  12. FERROUS SULFATE TAB [Concomitant]
     Dosage: 325 MG, UNK

REACTIONS (11)
  - ANXIETY [None]
  - RENAL IMPAIRMENT [None]
  - FEAR [None]
  - ANHEDONIA [None]
  - RENAL FAILURE [None]
  - PAIN [None]
  - EMOTIONAL DISTRESS [None]
  - STRESS [None]
  - RENAL INJURY [None]
  - UNEVALUABLE EVENT [None]
  - INJURY [None]
